FAERS Safety Report 4758394-3 (Version None)
Quarter: 2005Q3

REPORT INFORMATION
  Report Type: 
  Country: None (occurrence: None)
  Receive Date: 20050826
  Receipt Date: 20050506
  Transmission Date: 20060218
  Serious: Yes (Disabling)
  Sender: FDA-Public Use
  Company Number: WAES 0504USA00630

PATIENT
  Age: 66 Year
  Sex: Male

DRUGS (4)
  1. ZETIA [Suspect]
     Indication: BLOOD CHOLESTEROL INCREASED
     Dosage: 10 MG/DAILY/PO
     Route: 048
     Dates: start: 20050329, end: 20050401
  2. PRINIVIL [Concomitant]
  3. ATENOLOL [Concomitant]
  4. DOXAZOSIN MESYLATE [Concomitant]

REACTIONS (1)
  - ARTHRALGIA [None]
